FAERS Safety Report 5723400-6 (Version None)
Quarter: 2008Q2

REPORT INFORMATION
  Report Type: 
  Country: None (occurrence: None)
  Receive Date: 20080429
  Receipt Date: 20080429
  Transmission Date: 20081010
  Serious: Yes (Hospitalization)
  Sender: FDA-Public Use
  Company Number: None

PATIENT
  Age: 69 Year
  Sex: Female
  Weight: 102.06 kg

DRUGS (1)
  1. BORTEZOMIB [Suspect]
     Indication: MULTIPLE MYELOMA
     Dosage: 2.6MG OTHER IV
     Route: 042
     Dates: start: 20080331

REACTIONS (5)
  - CONSTIPATION [None]
  - DECREASED APPETITE [None]
  - EPISTAXIS [None]
  - NASOPHARYNGITIS [None]
  - THROMBOCYTOPENIA [None]
